FAERS Safety Report 7293131-2 (Version None)
Quarter: 2011Q1

REPORT INFORMATION
  Report Type: 
  Country: None (occurrence: None)
  Receive Date: 20110203
  Receipt Date: 20110120
  Transmission Date: 20110831
  Serious: Yes (Other)
  Sender: FDA-Public Use
  Company Number: 2011SP003128

PATIENT
  Age: 3 Year
  Sex: Male
  Weight: 16 kg

DRUGS (2)
  1. NASONEX [Suspect]
     Indication: ADENOIDAL DISORDER
     Dosage: NAS
     Route: 045
     Dates: start: 20101201, end: 20110118
  2. NIMESULID (NIMESULIDE /00845801/) [Suspect]
     Indication: OROPHARYNGEAL PAIN

REACTIONS (2)
  - OROPHARYNGEAL PAIN [None]
  - MYOCARDIAL INFARCTION [None]
